FAERS Safety Report 4385424-3 (Version None)
Quarter: 2004Q2

REPORT INFORMATION
  Report Type: 
  Country: None (occurrence: None)
  Receive Date: 20040622
  Receipt Date: 20040607
  Transmission Date: 20050107
  Serious: Yes (Hospitalization)
  Sender: FDA-Public Use
  Company Number: 199567

PATIENT
  Age: 60 Year
  Sex: Male
  Weight: 98.8842 kg

DRUGS (1)
  1. AVONEX [Suspect]
     Indication: MULTIPLE SCLEROSIS
     Dosage: 30 MCG QW IM
     Route: 030
     Dates: start: 20040401, end: 20040526

REACTIONS (5)
  - DEHYDRATION [None]
  - DISEASE RECURRENCE [None]
  - MUSCULAR WEAKNESS [None]
  - PYREXIA [None]
  - VOMITING [None]
